APPROVED DRUG PRODUCT: ACTIDIL
Active Ingredient: TRIPROLIDINE HYDROCHLORIDE
Strength: 1.25MG/5ML
Dosage Form/Route: SYRUP;ORAL
Application: N011496 | Product #002
Applicant: GLAXOSMITHKLINE
Approved: Jul 1, 1983 | RLD: No | RS: No | Type: DISCN